FAERS Safety Report 9322018 (Version 1)
Quarter: 2013Q2

REPORT INFORMATION
  Report Type: Spontaneous
  Country: US (occurrence: US)
  Receive Date: 20130531
  Receipt Date: 20130531
  Transmission Date: 20140414
  Serious: Yes (Other)
  Sender: FDA-Public Use
  Company Number: US-PFIZER INC-2013162903

PATIENT
  Age: 17 Year
  Sex: Female

DRUGS (1)
  1. CHAPSTICK LIP BALM [Suspect]
     Dosage: UNK

REACTIONS (2)
  - Neoplasm malignant [Unknown]
  - Obsessive thoughts [Unknown]
